FAERS Safety Report 4355361-9 (Version None)
Quarter: 2004Q2

REPORT INFORMATION
  Report Type: 
  Country: None (occurrence: None)
  Receive Date: 20040510
  Receipt Date: 20040420
  Transmission Date: 20050107
  Serious: Yes (Hospitalization)
  Sender: FDA-Public Use
  Company Number: PHBS2004DK05513

PATIENT
  Age: 3 Month
  Sex: Female

DRUGS (4)
  1. TEGRETOL [Suspect]
     Indication: EPILEPSY
     Dosage: 75 MG, BID
     Route: 048
     Dates: start: 20040329, end: 20040402
  2. BRICANYL [Concomitant]
     Indication: ASTHMA
     Dosage: 1 ML, PRN
     Dates: start: 20040315
  3. TRIMONIL RETARD [Suspect]
     Indication: EPILEPSY
     Dosage: 75 MG, BID
     Dates: start: 20040219, end: 20040329
  4. FUCIDINE CAP [Concomitant]
     Route: 065

REACTIONS (17)
  - ASPIRATION TRACHEAL ABNORMAL [None]
  - ASTHMA [None]
  - BACTERIAL INFECTION [None]
  - BRONCHOSPASM [None]
  - FLUID RETENTION [None]
  - LUNG INFILTRATION [None]
  - MORAXELLA INFECTION [None]
  - NERVOUS SYSTEM DISORDER [None]
  - PERTUSSIS [None]
  - PNEUMOCOCCAL INFECTION [None]
  - PNEUMONIA VIRAL [None]
  - PULMONARY CONGESTION [None]
  - RESPIRATION ABNORMAL [None]
  - RESPIRATORY SYNCYTIAL VIRUS INFECTION [None]
  - STREPTOCOCCAL INFECTION [None]
  - WEIGHT INCREASED [None]
  - WHITE BLOOD CELL COUNT INCREASED [None]
